FAERS Safety Report 23379847 (Version 3)
Quarter: 2024Q1

REPORT INFORMATION
  Report Type: Report from Study
  Country: US (occurrence: US)
  Receive Date: 20240108
  Receipt Date: 20240118
  Transmission Date: 20240409
  Serious: Yes (Other)
  Sender: FDA-Public Use
  Company Number: US-ABBVIE-5553908

PATIENT
  Age: 70 Year
  Sex: Male
  Weight: 65.77 kg

DRUGS (8)
  1. IMBRUVICA [Suspect]
     Active Substance: IBRUTINIB
     Indication: Chronic lymphocytic leukaemia
     Dosage: FORM STRENGTH WAS 140 MILLIGRAM, 3 CAPSULE?LAST ADMIN DATE 2021
     Route: 048
     Dates: start: 20210510
  2. IMBRUVICA [Suspect]
     Active Substance: IBRUTINIB
     Indication: Chronic lymphocytic leukaemia
     Dosage: FORM STRENGTH WAS 140 MILLIGRAM, 3 CAPSULES ?STOP DATE TEXT: 7 DAYS
     Route: 048
     Dates: start: 202205, end: 20231223
  3. IMBRUVICA [Suspect]
     Active Substance: IBRUTINIB
     Indication: Chronic lymphocytic leukaemia
     Dosage: 3 CAPSULE?FORM STRENGTH WAS 140 MILLIGRAM
     Route: 048
     Dates: start: 20240106
  4. IMBRUVICA [Suspect]
     Active Substance: IBRUTINIB
     Indication: Chronic lymphocytic leukaemia
     Dosage: 3 CAPSULE?FORM STRENGTH WAS 140 MILLIGRAM
     Route: 048
     Dates: start: 202107, end: 202205
  5. IMBRUVICA [Suspect]
     Active Substance: IBRUTINIB
     Indication: Chronic lymphocytic leukaemia
     Dosage: FORM STRENGTH WAS 140 MILLIGRAM?1 CAPSULE?STOP DATE TEXT: 2 WEEKS?LAST ADMIN DATE JUL 2021
     Route: 048
     Dates: start: 202107
  6. IMBRUVICA [Suspect]
     Active Substance: IBRUTINIB
     Indication: Chronic lymphocytic leukaemia
     Dosage: FORM STRENGTH WAS 140 MILLIGRAM?2 CAPSULE?STOP DATE TEXT: 2 WEEKS?LAST ADMIN DATE JUL 2021?STOP D...
     Route: 048
     Dates: start: 202107
  7. BUPROPION [Concomitant]
     Active Substance: BUPROPION
     Indication: Antidepressant therapy
  8. AMLODIPINE [Concomitant]
     Active Substance: AMLODIPINE BESYLATE
     Indication: Blood pressure measurement

REACTIONS (11)
  - Tooth impacted [Recovering/Resolving]
  - Sinus perforation [Recovering/Resolving]
  - Hyperhidrosis [Unknown]
  - Dental caries [Recovering/Resolving]
  - Feeding disorder [Recovering/Resolving]
  - White blood cell count decreased [Not Recovered/Not Resolved]
  - Tooth impacted [Recovered/Resolved]
  - Stomatitis [Recovered/Resolved]
  - Periodontal disease [Recovering/Resolving]
  - Rash macular [Recovered/Resolved]
  - Mass [Unknown]

NARRATIVE: CASE EVENT DATE: 20210601
